FAERS Safety Report 4481090-7 (Version None)
Quarter: 2004Q4

REPORT INFORMATION
  Report Type: 
  Country: None (occurrence: None)
  Receive Date: 20040923
  Receipt Date: 20040630
  Transmission Date: 20050328
  Serious: No
  Sender: FDA-Public Use
  Company Number: USA040157884

PATIENT
  Age: 71 Year
  Sex: Female
  Weight: 56 kg

DRUGS (10)
  1. FORTEO [Suspect]
     Indication: OSTEOPOROSIS
     Dosage: 20 UG DAY
     Dates: start: 20040125
  2. PREDNISONE [Concomitant]
  3. METHOTREXATE SODIUM [Concomitant]
  4. DITROPAN [Concomitant]
  5. FOLIC ACID [Concomitant]
  6. MACRODANTIN [Concomitant]
  7. TAGAMET [Concomitant]
  8. ASPIRIN [Concomitant]
  9. MULTIVITAMIN [Concomitant]
  10. OSCAL (CALCIUM CARBONATE) [Concomitant]

REACTIONS (4)
  - DIZZINESS [None]
  - INJECTION SITE HAEMORRHAGE [None]
  - SINUS CONGESTION [None]
  - SINUS HEADACHE [None]
